FAERS Safety Report 8172489-6 (Version None)
Quarter: 2012Q1

REPORT INFORMATION
  Report Type: 
  Country: None (occurrence: None)
  Receive Date: 20120229
  Receipt Date: 20120217
  Transmission Date: 20120608
  Serious: Yes (Hospitalization, Other)
  Sender: FDA-Public Use
  Company Number: US-BAYER-201036634NA

PATIENT
  Age: 26 Year
  Sex: Female
  Weight: 81.633 kg

DRUGS (4)
  1. AZITHROMYCIN [Concomitant]
     Dosage: 250 MG, UNK
     Route: 048
     Dates: start: 20081207
  2. CIPRO [Concomitant]
     Dosage: 500 MG, UNK
     Route: 048
     Dates: start: 20081017
  3. ANTIBIOTICS [Concomitant]
     Indication: INFECTIOUS PERITONITIS
  4. DROSPIRENONE AND ETHINYL ESTRADIOL [Suspect]
     Indication: CONTRACEPTION
     Dosage: UNK
     Route: 048
     Dates: start: 20081204, end: 20081218

REACTIONS (3)
  - INJURY [None]
  - CEREBROVASCULAR ACCIDENT [None]
  - ROAD TRAFFIC ACCIDENT [None]
